FAERS Safety Report 17775932 (Version 1)
Quarter: 2020Q2

REPORT INFORMATION
  Report Type: Spontaneous
  Country: US (occurrence: US)
  Receive Date: 20200513
  Receipt Date: 20200513
  Transmission Date: 20200714
  Serious: Yes (Other)
  Sender: FDA-Public Use
  Company Number: None

PATIENT

DRUGS (1)
  1. GLEEM WHITENING SYSTEMS STRIPS + LIGHT WHITESTRIP 3D WHITE [Suspect]
     Active Substance: HYDROGEN PEROXIDE
     Dosage: ?          OTHER ROUTE:INTRAORAL?

REACTIONS (3)
  - Tooth fracture [None]
  - Hyperaesthesia teeth [None]
  - Toothache [None]
